FAERS Safety Report 4878130-X (Version None)
Quarter: 2006Q1

REPORT INFORMATION
  Report Type: 
  Country: None (occurrence: None)
  Receive Date: 20060111
  Receipt Date: 20051019
  Transmission Date: 20060701
  Serious: Yes (Other)
  Sender: FDA-Public Use
  Company Number: 200518263US

PATIENT
  Sex: Male
  Weight: 107.5 kg

DRUGS (16)
  1. LANTUS [Suspect]
     Indication: DIABETES MELLITUS NON-INSULIN-DEPENDENT
     Dosage: DOSE UNIT: UNITS
     Route: 058
     Dates: end: 20051001
  2. LANTUS [Suspect]
     Dosage: DOSE UNIT: UNITS
     Route: 058
     Dates: start: 20051001
  3. PREDNISONE [Suspect]
     Dates: start: 20050101
  4. PREDNISONE [Suspect]
     Dates: start: 20050101
  5. PREDNISONE [Suspect]
     Dates: start: 20050101
  6. PREDNISONE [Suspect]
     Dates: start: 20050101
  7. HUMALOG [Concomitant]
     Dosage: FREQUENCY: BEFORE MEALS; DOSE UNIT: UNITS
     Route: 058
     Dates: start: 20051001
  8. DIGOXIN [Concomitant]
     Dosage: DOSE: UNK
  9. PLAVIX [Concomitant]
     Dosage: DOSE: UNK
  10. ATENOLOL [Concomitant]
     Dosage: DOSE: UNK
  11. GLIPIZIDE [Concomitant]
     Dosage: DOSE: UNK
  12. FLECAINIDE ACETATE [Concomitant]
     Dosage: DOSE: UNK
  13. ZOCOR [Concomitant]
     Dosage: DOSE: UNK
  14. AVANDIA [Concomitant]
     Dosage: DOSE: UNK
  15. POTASSIUM [Concomitant]
  16. ISOSORBIDE MONONITRATE [Concomitant]
     Dosage: DOSE: UNK

REACTIONS (5)
  - CARDIAC FAILURE CONGESTIVE [None]
  - CORONARY ARTERY DISEASE [None]
  - HYPERGLYCAEMIA [None]
  - PERICARDIAL EFFUSION [None]
  - PERICARDITIS [None]
